FAERS Safety Report 15002300 (Version 1)
Quarter: 2018Q2

REPORT INFORMATION
  Report Type: Spontaneous
  Country: DK (occurrence: DK)
  Receive Date: 20180612
  Receipt Date: 20180612
  Transmission Date: 20180711
  Serious: Yes (Hospitalization)
  Sender: FDA-Public Use
  Company Number: DK-ASTRAZENECA-2018SE73659

PATIENT
  Age: 24 Year
  Sex: Female

DRUGS (10)
  1. BUFOMIX EASYHALER [Suspect]
     Active Substance: BUDESONIDE\FORMOTEROL FUMARATE
     Indication: ASTHMA
     Route: 055
     Dates: start: 20161014
  2. FEXOFENADINE [Concomitant]
     Active Substance: FEXOFENADINE\FEXOFENADINE HYDROCHLORIDE
     Indication: SEASONAL ALLERGY
     Dosage: STYRKE: 120 MG.
     Route: 048
     Dates: start: 20170701
  3. GIONA EASYHALER [Suspect]
     Active Substance: BUDESONIDE
     Indication: ASTHMA
     Dosage: 400UG/INHAL DAILY
     Route: 055
     Dates: start: 20170313
  4. ROXITHROMYCIN [Concomitant]
     Active Substance: ROXITHROMYCIN
     Indication: OTITIS MEDIA
     Dosage: STYRKE: 300 MG.
     Route: 048
     Dates: start: 20171228, end: 20180226
  5. DESLORATADINE. [Concomitant]
     Active Substance: DESLORATADINE
     Indication: SEASONAL ALLERGY
     Dosage: STYRKE: 5 MG.
     Route: 048
     Dates: start: 20170111
  6. LEVONORGESTREL. [Concomitant]
     Active Substance: LEVONORGESTREL
     Indication: CONTRACEPTION
     Dosage: STYRKE: 0,15+0,03 MG.
     Route: 048
     Dates: start: 20170629
  7. SALBUTAMOL [Concomitant]
     Active Substance: ALBUTEROL
     Indication: ASTHMA
     Dosage: DOSIS: 1 SUG EFTER BEHOV. STYRKE: 200 MIKROGRAM/DOSIS.
     Route: 055
     Dates: start: 20161014
  8. FLUTICASONE. [Concomitant]
     Active Substance: FLUTICASONE
     Indication: RHINORRHOEA
     Dosage: STYRKE: 27,5 MIKROGRAM
     Route: 045
     Dates: start: 20170111
  9. OPATANOL [Concomitant]
     Active Substance: OLOPATADINE
     Indication: CONJUNCTIVITIS ALLERGIC
     Dosage: STYRKE: 1 MG/ML.
     Dates: start: 20170111
  10. MILDISON LIPID [Concomitant]
     Indication: RASH
     Dosage: DOSIS: 1 P???SM???RING 2 GANGE DAGLIGT. STYRKE: 10 MG/G.
     Route: 003
     Dates: start: 20141006

REACTIONS (3)
  - Fatigue [Recovering/Resolving]
  - Adrenal insufficiency [Not Recovered/Not Resolved]
  - Dyspnoea [Recovering/Resolving]

NARRATIVE: CASE EVENT DATE: 2018
